FAERS Safety Report 5022053-2 (Version None)
Quarter: 2006Q2

REPORT INFORMATION
  Report Type: 
  Country: None (occurrence: None)
  Receive Date: 20060609
  Receipt Date: 20060601
  Transmission Date: 20061013
  Serious: Yes (Death)
  Sender: FDA-Public Use
  Company Number: US-ABBOTT-06P-163-0335295-00

PATIENT
  Sex: Female
  Weight: 68.1 kg

DRUGS (2)
  1. DEPAKOTE [Suspect]
     Indication: CONVULSION
     Dates: start: 19940101
  2. CLOZAPINE [Suspect]
     Indication: SCHIZOPHRENIA
     Dates: start: 19940101, end: 20060301

REACTIONS (1)
  - CONVULSION [None]
